FAERS Safety Report 4735750-0 (Version None)
Quarter: 2005Q3

REPORT INFORMATION
  Report Type: 
  Country: None (occurrence: None)
  Receive Date: 20050805
  Receipt Date: 20050607
  Transmission Date: 20060218
  Serious: Yes (Hospitalization, Other)
  Sender: FDA-Public Use
  Company Number: 200514912US

PATIENT
  Sex: Male

DRUGS (4)
  1. LANTUS [Suspect]
     Dosage: DOSE UNIT: UNITS
     Dates: start: 20050607
  2. OPTICLIK (INSULIN INJECTION PEN) [Suspect]
     Dosage: DOSE: UNK
     Dates: start: 20050607
  3. NOVOLOG [Concomitant]
  4. AVANDIA [Concomitant]

REACTIONS (5)
  - ACCIDENTAL OVERDOSE [None]
  - ATRIAL FIBRILLATION [None]
  - DIZZINESS [None]
  - LOSS OF CONSCIOUSNESS [None]
  - PHARMACEUTICAL PRODUCT COMPLAINT [None]
